FAERS Safety Report 9508885 (Version 3)
Quarter: 2014Q3

REPORT INFORMATION
  Report Type: Spontaneous
  Country: US (occurrence: US)
  Receive Date: 20130909
  Receipt Date: 20140908
  Transmission Date: 20150326
  Serious: Yes (Other)
  Sender: FDA-Public Use
  Company Number: US-BRISTOL-MYERS SQUIBB COMPANY-19038785

PATIENT
  Age: 30 Year
  Sex: Female
  Weight: 55.33 kg

DRUGS (3)
  1. ABILIFY MAINTENA [Suspect]
     Active Substance: ARIPIPRAZOLE
     Indication: SCHIZOPHRENIFORM DISORDER
     Dosage: 2 INJ: 29MAY2013?300MG
     Route: 042
     Dates: start: 20130507
  2. SAPHRIS [Concomitant]
     Active Substance: ASENAPINE MALEATE
     Dates: end: 20130507
  3. ABILIFY [Suspect]
     Active Substance: ARIPIPRAZOLE
     Dosage: 20MG?ALSO AS CONMED
     Route: 048
     Dates: start: 20130507

REACTIONS (3)
  - Treatment noncompliance [Unknown]
  - Schizophrenia, paranoid type [Recovered/Resolved]
  - Inappropriate schedule of drug administration [Unknown]
